FAERS Safety Report 4734095-2 (Version None)
Quarter: 2005Q3

REPORT INFORMATION
  Report Type: 
  Country: None (occurrence: None)
  Receive Date: 20050804
  Receipt Date: 20040907
  Transmission Date: 20060218
  Serious: Yes (Hospitalization)
  Sender: FDA-Public Use
  Company Number: FR-BOEHRINGER INGELHEIM PHARMACEUTICALS, INC.-2004-FF-00525FF

PATIENT
  Sex: Female
  Weight: 46 kg

DRUGS (7)
  1. TIPRANAVIR + RITONAVIR CO-ADMIN [Suspect]
     Indication: HIV INFECTION
     Dosage: TPV/RTV 500/200 MG B.I.D.
     Route: 048
     Dates: start: 20040421, end: 20040607
  2. TIPRANAVIR + RITONAVIR CO-ADMIN [Suspect]
     Dosage: TPV/RTV 500/100 MG B.I.D.
     Route: 048
     Dates: start: 20040608
  3. FUZEON [Concomitant]
     Indication: HIV INFECTION
     Route: 058
     Dates: start: 20040421, end: 20040914
  4. ZIAGEN [Concomitant]
     Indication: HIV INFECTION
     Route: 048
     Dates: start: 20040421
  5. EPIVIR [Concomitant]
     Indication: HIV INFECTION
     Route: 048
     Dates: start: 20040421, end: 20040608
  6. BACTRIM [Concomitant]
     Dosage: ONE TABLET DAILY
     Route: 048
     Dates: start: 20000101
  7. TRIFLUCAN [Concomitant]
     Route: 048
     Dates: start: 20040406

REACTIONS (5)
  - CLOSTRIDIUM COLITIS [None]
  - DIARRHOEA [None]
  - GENERAL PHYSICAL HEALTH DETERIORATION [None]
  - PYREXIA [None]
  - VOMITING [None]
